FAERS Safety Report 12540490 (Version 8)
Quarter: 2020Q1

REPORT INFORMATION
  Report Type: Report from Study
  Country: CA (occurrence: CA)
  Receive Date: 20160708
  Receipt Date: 20200323
  Transmission Date: 20200409
  Serious: Yes (Life-Threatening, Other)
  Sender: FDA-Public Use
  Company Number: CA-SA-2015SA172507

PATIENT
  Age: 33 Year
  Sex: Female
  Weight: 95.5 kg

DRUGS (5)
  1. DIPHENHYDRAMINE HYDROCHLORIDE. [Suspect]
     Active Substance: DIPHENHYDRAMINE HYDROCHLORIDE
     Dosage: 25 MG,UNK
     Route: 042
     Dates: start: 20151026, end: 20151026
  2. CARBAMAZEPINE. [Concomitant]
     Active Substance: CARBAMAZEPINE
     Indication: SLEEP DISORDER
     Dosage: 200 MG,PRN
     Route: 048
     Dates: start: 20151208
  3. ALEMTUZUMAB [Suspect]
     Active Substance: ALEMTUZUMAB
     Indication: RELAPSING-REMITTING MULTIPLE SCLEROSIS
     Dosage: 12 MG,QD
     Route: 041
     Dates: start: 20151026, end: 20151028
  4. DIMENHYDRINATE. [Suspect]
     Active Substance: DIMENHYDRINATE
     Indication: NAUSEA
     Dosage: 25 MG,UNK
     Route: 042
     Dates: start: 20151026, end: 20151026
  5. METHYLPREDNISOLONE. [Suspect]
     Active Substance: METHYLPREDNISOLONE
     Dosage: 1 G,UNK
     Route: 042
     Dates: start: 20151026, end: 20151026

REACTIONS (47)
  - Arthralgia [Unknown]
  - Goitre [Recovered/Resolved]
  - Muscular weakness [Unknown]
  - Abortion spontaneous [Recovered/Resolved]
  - Bladder disorder [Recovered/Resolved]
  - Creatinine urine decreased [Recovered/Resolved]
  - Mean cell volume decreased [Recovered/Resolved]
  - Infertility [Recovered/Resolved]
  - Throat irritation [Recovered/Resolved]
  - Fatigue [Recovered/Resolved]
  - Red blood cells urine [Recovered/Resolved]
  - Blood thyroid stimulating hormone increased [Not Recovered/Not Resolved]
  - Dizziness [Recovered/Resolved]
  - Fatigue [Unknown]
  - Exposure during pregnancy [Not Recovered/Not Resolved]
  - Muscular weakness [Recovered/Resolved]
  - Haemoglobin urine present [Recovered/Resolved]
  - White blood cells urine positive [Recovered/Resolved]
  - Headache [Recovered/Resolved]
  - Basedow^s disease [Unknown]
  - Hyperhidrosis [Not Recovered/Not Resolved]
  - Papillary thyroid cancer [Recovered/Resolved]
  - Palpitations [Unknown]
  - Endocrine ophthalmopathy [Recovered/Resolved]
  - Red blood cell count increased [Recovered/Resolved]
  - Monocyte count increased [Recovered/Resolved]
  - Lymphocyte count decreased [Recovered/Resolved]
  - Blood luteinising hormone decreased [Unknown]
  - Contusion [Recovering/Resolving]
  - Tremor [Unknown]
  - Heart rate increased [Unknown]
  - Antibody test abnormal [Recovered/Resolved]
  - Haemoglobin increased [Recovered/Resolved]
  - Creatinine urine increased [Recovered/Resolved]
  - Urine abnormality [Recovered/Resolved]
  - Protein urine present [Recovered/Resolved]
  - Myalgia [Unknown]
  - Dyspnoea [Unknown]
  - Condition aggravated [Not Recovered/Not Resolved]
  - Urine ketone body present [Recovered/Resolved]
  - White blood cells urine positive [Recovered/Resolved]
  - Thyroxine free increased [Recovered/Resolved]
  - Blood thyroid stimulating hormone decreased [Recovered/Resolved]
  - Dysphonia [Unknown]
  - Weight increased [Unknown]
  - Tremor [Recovered/Resolved]
  - Headache [Not Recovered/Not Resolved]

NARRATIVE: CASE EVENT DATE: 20151026
